FAERS Safety Report 18671791 (Version 3)
Quarter: 2021Q3

REPORT INFORMATION
  Report Type: Report from Study
  Country: US (occurrence: US)
  Receive Date: 20201228
  Receipt Date: 20210718
  Transmission Date: 20211014
  Serious: No
  Sender: FDA-Public Use
  Company Number: NVSC2020US339419

PATIENT
  Age: 73 Year
  Sex: Male

DRUGS (1)
  1. ENTRESTO [Suspect]
     Active Substance: SACUBITRIL\VALSARTAN
     Indication: CARDIAC FAILURE
     Dosage: UNK, UNKNOWN
     Route: 065

REACTIONS (4)
  - Magnesium deficiency [Unknown]
  - Hypovitaminosis [Unknown]
  - Renal disorder [Unknown]
  - Bladder disorder [Unknown]
